FAERS Safety Report 5233186-X (Version None)
Quarter: 2007Q1

REPORT INFORMATION
  Report Type: 
  Country: None (occurrence: None)
  Receive Date: 20070207
  Receipt Date: 20070129
  Transmission Date: 20070707
  Serious: Yes (Hospitalization)
  Sender: FDA-Public Use
  Company Number: NO-PFIZER INC-2007008357

PATIENT
  Sex: Male

DRUGS (4)
  1. SALAZOPYRIN-EN [Suspect]
     Indication: ARTHRITIS
     Route: 048
     Dates: start: 20061201, end: 20070101
  2. PREDNISOLONE [Concomitant]
     Route: 048
  3. DIURETICS [Concomitant]
     Route: 048
  4. ALL OTHER THERAPEUTIC PRODUCTS [Concomitant]
     Route: 048

REACTIONS (7)
  - IMMUNODEFICIENCY [None]
  - LEUKOPENIA [None]
  - NEUTROPENIA [None]
  - PYREXIA [None]
  - RASH [None]
  - STAPHYLOCOCCAL INFECTION [None]
  - SWELLING [None]
